FAERS Safety Report 8304141-8 (Version None)
Quarter: 2012Q2

REPORT INFORMATION
  Report Type: 
  Country: None (occurrence: None)
  Receive Date: 20120411
  Receipt Date: 20120328
  Transmission Date: 20120825
  Serious: Yes (Hospitalization, Other)
  Sender: FDA-Public Use
  Company Number: 003-072

PATIENT
  Age: 10 Year
  Sex: Male

DRUGS (2)
  1. CROFAB [Suspect]
  2. CROFAB [Suspect]
     Indication: SNAKE BITE
     Dosage: 22 VIALS TOTAL
     Dates: start: 20120314, end: 20120318

REACTIONS (11)
  - COMPARTMENT SYNDROME [None]
  - SERUM SICKNESS [None]
  - SWELLING [None]
  - ECCHYMOSIS [None]
  - JOINT RANGE OF MOTION DECREASED [None]
  - OEDEMA [None]
  - TENDERNESS [None]
  - LACERATION [None]
  - BLOOD CREATINE PHOSPHOKINASE INCREASED [None]
  - RASH MACULO-PAPULAR [None]
  - NECROSIS [None]
